FAERS Safety Report 20552081 (Version 2)
Quarter: 2022Q3

REPORT INFORMATION
  Report Type: Spontaneous
  Country: JP (occurrence: JP)
  Receive Date: 20220304
  Receipt Date: 20220707
  Transmission Date: 20221027
  Serious: No
  Sender: FDA-Public Use
  Company Number: JP-GLAXOSMITHKLINE-JP2022JPN037459

PATIENT

DRUGS (6)
  1. SOTROVIMAB [Suspect]
     Active Substance: SOTROVIMAB
     Indication: COVID-19
     Dosage: 500 MG
     Route: 041
     Dates: start: 20220225, end: 20220225
  2. RITODRINE [Suspect]
     Active Substance: RITODRINE
     Indication: Premature labour
     Dosage: 10 TO 20 MG/DAY
     Route: 048
     Dates: start: 20220218, end: 20220309
  3. CALONAL [Suspect]
     Active Substance: ACETAMINOPHEN
     Indication: Pyrexia
     Dosage: 500 MG/DAY
     Route: 048
     Dates: start: 20220223
  4. MAGNESIUM OXIDE [Suspect]
     Active Substance: MAGNESIUM OXIDE
     Indication: Constipation
     Dosage: 990 MG/DAY
     Route: 048
     Dates: start: 20220226, end: 20220304
  5. FERROUS CITRATE [Suspect]
     Active Substance: FERROUS CITRATE
     Indication: Anaemia of pregnancy
     Dosage: 100 MG/DAY
     Route: 048
     Dates: start: 20220306, end: 20220319
  6. REBAMIPIDE [Suspect]
     Active Substance: REBAMIPIDE
     Indication: Anaemia of pregnancy
     Dosage: 200 MG/DAY
     Route: 048
     Dates: start: 20220306, end: 20220319

REACTIONS (2)
  - Exposure during pregnancy [Unknown]
  - Live birth [Unknown]
